FAERS Safety Report 9087833 (Version 1)
Quarter: 2013Q1

REPORT INFORMATION
  Report Type: Report from Study
  Country: US (occurrence: US)
  Receive Date: 20130130
  Receipt Date: 20130130
  Transmission Date: 20140127
  Serious: No
  Sender: FDA-Public Use
  Company Number: US-ABBOTT-12P-163-0985594-00

PATIENT
  Age: 51 Year
  Sex: Female

DRUGS (14)
  1. HUMIRA [Suspect]
     Indication: RHEUMATOID ARTHRITIS
     Dates: start: 20111014, end: 20120906
  2. PLAQUENIL [Concomitant]
     Indication: PSORIASIS
  3. FOLIC ACID [Concomitant]
     Indication: PRODUCT USED FOR UNKNOWN INDICATION
     Dates: end: 20120907
  4. METFORMIN ER [Concomitant]
     Indication: GLUCOSE TOLERANCE IMPAIRED
  5. GEMFIBROZIL [Concomitant]
     Indication: BLOOD CHOLESTEROL
  6. LEVOTHYROXINE [Concomitant]
     Indication: HYPOTHYROIDISM
     Dosage: IN THE MORNING
  7. ESTRADIOL [Concomitant]
     Indication: MENOPAUSE
  8. PREMARIN [Concomitant]
     Indication: MENOPAUSE
  9. FAMOTIDINE [Concomitant]
     Indication: GASTROOESOPHAGEAL REFLUX DISEASE
  10. CITRACAL [Concomitant]
     Indication: PRODUCT USED FOR UNKNOWN INDICATION
  11. ALEVE [Concomitant]
     Indication: ARTHRITIS
     Dosage: IN THE MORNING
  12. TRIAMCINOLONE [Concomitant]
     Indication: PSORIASIS
  13. FOSAMAX [Concomitant]
     Indication: PRODUCT USED FOR UNKNOWN INDICATION
  14. ZYRTEC [Concomitant]
     Indication: HYPERSENSITIVITY

REACTIONS (3)
  - Psoriasis [Not Recovered/Not Resolved]
  - Pruritus [Not Recovered/Not Resolved]
  - Arthralgia [Not Recovered/Not Resolved]
